FAERS Safety Report 8642692 (Version 2)
Quarter: 2012Q4

REPORT INFORMATION
  Report Type: 
  Country: US (occurrence: US)
  Receive Date: 20120629
  Receipt Date: 20120918
  Transmission Date: 20130627
  Serious: Yes (Other)
  Sender: FDA-Public Use
  Company Number: US-BAYER-2012-061931

PATIENT
  Age: 35 Year
  Sex: Female
  Weight: 146.49 kg

DRUGS (1)
  1. MIRENA [Suspect]
     Indication: DYSFUNCTIONAL UTERINE BLEEDING
     Dosage: 20 mcg/24hr, CONT
     Route: 015
     Dates: start: 20111115, end: 20111202

REACTIONS (3)
  - Uterine cancer [None]
  - Device expulsion [None]
  - Uterine polyp [None]
